FAERS Safety Report 8908328 (Version 3)
Quarter: 2015Q4

REPORT INFORMATION
  Report Type: Report from Study
  Country: IN (occurrence: IN)
  Receive Date: 20121114
  Receipt Date: 20151118
  Transmission Date: 20160305
  Serious: Yes (Death, Other)
  Sender: FDA-Public Use
  Company Number: PHHY2012IN101632

PATIENT
  Age: 76 Year
  Sex: Male

DRUGS (1)
  1. GLIVEC [Suspect]
     Active Substance: IMATINIB MESYLATE
     Indication: CHRONIC MYELOID LEUKAEMIA
     Dosage: 400 MG, UNK
     Route: 065

REACTIONS (3)
  - Blindness [Unknown]
  - Death [Fatal]
  - Depression [Unknown]

NARRATIVE: CASE EVENT DATE: 20151024
